FAERS Safety Report 24719726 (Version 1)
Quarter: 2024Q4

REPORT INFORMATION
  Report Type: Spontaneous
  Country: US (occurrence: US)
  Receive Date: 20241211
  Receipt Date: 20241211
  Transmission Date: 20250114
  Serious: Yes (Other)
  Sender: BRISTOL-MYERS SQUIBB COMPANY
  Company Number: US-BRISTOL-MYERS SQUIBB COMPANY-2024-187327

PATIENT
  Age: 3 Year
  Sex: Male

DRUGS (1)
  1. ORENCIA [Suspect]
     Active Substance: ABATACEPT
     Indication: Immunodeficiency
     Dosage: FREQUENCY: EVERY 7 DAYS
     Route: 058
     Dates: start: 202308

REACTIONS (2)
  - Anaphylactic reaction [Unknown]
  - Off label use [Unknown]
